FAERS Safety Report 25930113 (Version 1)
Quarter: 2025Q4

REPORT INFORMATION
  Report Type: Spontaneous
  Country: CN (occurrence: CN)
  Receive Date: 20251016
  Receipt Date: 20251016
  Transmission Date: 20260117
  Serious: Yes (Death, Other)
  Sender: ASTELLAS
  Company Number: CN-ASTELLAS-2025-AER-049375

PATIENT
  Age: 58 Year
  Sex: Female
  Weight: 51 kg

DRUGS (2)
  1. VYLOY [Suspect]
     Active Substance: ZOLBETUXIMAB-CLZB
     Indication: Gastric cancer stage IV
     Dosage: RECEIVED 8 INJECTIONS OF ZOLBETUXIMAB
     Route: 042
     Dates: start: 20250826, end: 20250826
  2. PACLITAXEL [Concomitant]
     Active Substance: PACLITAXEL
     Indication: Gastric cancer stage IV
     Route: 042
     Dates: start: 20250826, end: 20250826

REACTIONS (6)
  - Gastric perforation [Fatal]
  - Abdominal pain [Fatal]
  - Gastrointestinal haemorrhage [Fatal]
  - Peripheral coldness [Fatal]
  - Confusional state [Fatal]
  - Oxygen saturation decreased [Unknown]

NARRATIVE: CASE EVENT DATE: 20250902
